FAERS Safety Report 10256025 (Version 1)
Quarter: 2014Q2

REPORT INFORMATION
  Report Type: Spontaneous
  Country: US (occurrence: US)
  Receive Date: 20140624
  Receipt Date: 20140624
  Transmission Date: 20141212
  Serious: No
  Sender: FDA-Public Use
  Company Number: US-ZOGENIX, INC.-2012ZX000047

PATIENT
  Age: 45 Year
  Sex: Female
  Weight: 47.67 kg

DRUGS (6)
  1. SUMAVEL DOSEPRO [Suspect]
     Indication: MIGRAINE
  2. CLONAZEPAM [Concomitant]
     Indication: PRODUCT USED FOR UNKNOWN INDICATION
     Route: 048
  3. PROZAC [Concomitant]
     Indication: PRODUCT USED FOR UNKNOWN INDICATION
     Route: 048
  4. LYRICA [Concomitant]
     Indication: PRODUCT USED FOR UNKNOWN INDICATION
     Route: 048
  5. IMITREX [Concomitant]
     Indication: MIGRAINE
     Route: 048
  6. IMITREX [Concomitant]

REACTIONS (4)
  - Erythema [Not Recovered/Not Resolved]
  - Device malfunction [Recovered/Resolved]
  - Localised oedema [Not Recovered/Not Resolved]
  - Accidental exposure to product [Recovered/Resolved]
